FAERS Safety Report 6356372-4 (Version None)
Quarter: 2009Q3

REPORT INFORMATION
  Report Type: 
  Country: None (occurrence: None)
  Receive Date: 20090915
  Receipt Date: 20090914
  Transmission Date: 20100115
  Serious: Yes (Other)
  Sender: FDA-Public Use
  Company Number: US-ROXANE LABORATORIES, INC.-2009-RO-00938RO

PATIENT
  Age: 66 Year
  Sex: Male

DRUGS (4)
  1. CODEINE SULFATE [Suspect]
     Dates: end: 20070101
  2. PERCOCET [Suspect]
     Dates: end: 20070101
  3. VICODIN [Suspect]
     Dates: end: 20070101
  4. XANAX [Suspect]

REACTIONS (1)
  - DRUG DIVERSION [None]
